FAERS Safety Report 6668218-5 (Version None)
Quarter: 2010Q2

REPORT INFORMATION
  Report Type: 
  Country: None (occurrence: None)
  Receive Date: 20100406
  Receipt Date: 20091218
  Transmission Date: 20101027
  Serious: Yes (Other)
  Sender: FDA-Public Use
  Company Number: JP-JNJFOC-20090907476

PATIENT
  Age: 45 Year
  Sex: Female

DRUGS (1)
  1. CRAVIT [Suspect]
     Indication: CYSTITIS
     Route: 065
     Dates: start: 20090910, end: 20090910

REACTIONS (2)
  - DIZZINESS [None]
  - RESPIRATORY DISORDER [None]
